FAERS Safety Report 8151593-2 (Version None)
Quarter: 2012Q1

REPORT INFORMATION
  Report Type: 
  Country: None (occurrence: None)
  Receive Date: 20120220
  Receipt Date: 20120216
  Transmission Date: 20120608
  Serious: Yes (Life-Threatening, Other)
  Sender: FDA-Public Use
  Company Number: US-AMGEN-USASP2011035852

PATIENT
  Age: 60 Year
  Sex: Male

DRUGS (2)
  1. CORTICOSTEROIDS [Concomitant]
     Indication: IDIOPATHIC THROMBOCYTOPENIC PURPURA
  2. NPLATE [Suspect]
     Indication: IDIOPATHIC THROMBOCYTOPENIC PURPURA
     Dosage: 5 MUG/KG, UNK
     Route: 058
     Dates: start: 20101128

REACTIONS (4)
  - MULTIPLE MYELOMA [None]
  - FATIGUE [None]
  - MYALGIA [None]
  - THROMBOCYTOPENIA [None]
